FAERS Safety Report 7375052-X (Version None)
Quarter: 2011Q1

REPORT INFORMATION
  Report Type: 
  Country: None (occurrence: None)
  Receive Date: 20110325
  Receipt Date: 20110321
  Transmission Date: 20110831
  Serious: Yes (Death)
  Sender: FDA-Public Use
  Company Number: PHHY2011AR23061

PATIENT
  Sex: Female

DRUGS (1)
  1. DIOVAN HCT [Suspect]
     Indication: HYPERTENSION
     Dosage: 1 DF (160 MG OF VALSARTAN/12.5 MG OF HYDROCHLOROTHIAZIDE), QD
     Dates: start: 20100901

REACTIONS (1)
  - BREAST CANCER [None]
